FAERS Safety Report 4683561-7 (Version None)
Quarter: 2005Q2

REPORT INFORMATION
  Report Type: 
  Country: None (occurrence: None)
  Receive Date: 20050602
  Receipt Date: 20050222
  Transmission Date: 20051028
  Serious: Yes (Hospitalization)
  Sender: FDA-Public Use
  Company Number: USA050289711

PATIENT
  Age: 45 Year
  Sex: Male
  Weight: 102 kg

DRUGS (5)
  1. CYMBALTA [Suspect]
     Indication: DIABETIC NEUROPATHY
     Dosage: 60 MG
  2. GLUCOPHAGE [Concomitant]
  3. LASIX [Concomitant]
  4. K-DUR(POTASSUM CHLORIDE) [Concomitant]
  5. ATACAND [Concomitant]

REACTIONS (2)
  - DEHYDRATION [None]
  - VOMITING [None]
